FAERS Safety Report 8770892 (Version 1)
Quarter: 2012Q4

REPORT INFORMATION
  Report Type: 
  Country: DE (occurrence: DE)
  Receive Date: 20120906
  Receipt Date: 20120906
  Transmission Date: 20130627
  Serious: Yes (Other)
  Sender: FDA-Public Use
  Company Number: GXKR2012DE002796

PATIENT
  Age: 45 Year
  Sex: Male

DRUGS (3)
  1. PREDNISON HEXAL [Suspect]
     Indication: ABDOMINAL PAIN
     Dosage: 100 mg/day
     Route: 048
  2. PREDNISON HEXAL [Suspect]
     Dosage: 50 mg/day
     Route: 048
  3. PREDNISON HEXAL [Suspect]
     Dosage: 25 mg/day
     Route: 048

REACTIONS (3)
  - Cushingoid [Unknown]
  - Arthralgia [Not Recovered/Not Resolved]
  - Weight increased [Unknown]
